FAERS Safety Report 4517802-3 (Version None)
Quarter: 2004Q4

REPORT INFORMATION
  Report Type: 
  Country: None (occurrence: None)
  Receive Date: 20041201
  Receipt Date: 20041201
  Transmission Date: 20050328
  Serious: No
  Sender: FDA-Public Use
  Company Number: None

PATIENT
  Age: 47 Year
  Sex: Male

DRUGS (1)
  1. TOPAMAX [Suspect]
     Indication: RADICULOPATHY
     Dosage: 25MG INCREASED WEEKLY
     Dates: start: 20041020

REACTIONS (1)
  - UVEITIS [None]
